FAERS Safety Report 8199362-1 (Version None)
Quarter: 2012Q1

REPORT INFORMATION
  Report Type: 
  Country: None (occurrence: None)
  Receive Date: 20120309
  Receipt Date: 20120308
  Transmission Date: 20120608
  Serious: Yes (Hospitalization)
  Sender: FDA-Public Use
  Company Number: NO-PFIZER INC-2012062020

PATIENT
  Age: 45 Year
  Sex: Male

DRUGS (3)
  1. METFORMIN HYDROCHLORIDE [Concomitant]
     Indication: DIABETES MELLITUS
     Dosage: 1000MG, 1X/DAY
     Route: 048
     Dates: start: 20111129
  2. LIPITOR [Suspect]
     Indication: HYPERLIPIDAEMIA
     Dosage: 40 MG, DAILY
     Route: 048
     Dates: start: 20120213, end: 20120222
  3. METFORMIN HYDROCHLORIDE [Concomitant]
     Indication: DIABETES MELLITUS
     Dosage: 1 DF, 2X/DAY
     Route: 048
     Dates: start: 20100305

REACTIONS (5)
  - HEADACHE [None]
  - WEIGHT INCREASED [None]
  - TRANSAMINASES INCREASED [None]
  - BLOOD CREATINE PHOSPHOKINASE INCREASED [None]
  - SWELLING [None]
